FAERS Safety Report 23677495 (Version 1)
Quarter: 2024Q1

REPORT INFORMATION
  Report Type: Other
  Country: GB (occurrence: GB)
  Receive Date: 20240327
  Receipt Date: 20240327
  Transmission Date: 20240410
  Serious: Yes (Hospitalization, Other)
  Sender: FDA-Public Use
  Company Number: None

PATIENT

DRUGS (1)
  1. GABAPENTIN [Suspect]
     Active Substance: GABAPENTIN
     Indication: Pain
     Dosage: UNK
     Route: 065
     Dates: start: 20240304, end: 20240305

REACTIONS (4)
  - Tonic clonic movements [Unknown]
  - Loss of consciousness [Recovered/Resolved]
  - Nervousness [Unknown]
  - Myoclonus [Unknown]

NARRATIVE: CASE EVENT DATE: 20240304
